FAERS Safety Report 20503420 (Version 23)
Quarter: 2025Q2

REPORT INFORMATION
  Report Type: Report from Study
  Country: CN (occurrence: CN)
  Receive Date: 20220222
  Receipt Date: 20250630
  Transmission Date: 20250716
  Serious: Yes (Death, Life-Threatening, Other)
  Sender: TAKEDA
  Company Number: CN-TAKEDA-2021TUS034424

PATIENT
  Age: 64 Year
  Sex: Female
  Weight: 61 kg

DRUGS (17)
  1. IXAZOMIB [Suspect]
     Active Substance: IXAZOMIB
     Indication: Plasma cell myeloma refractory
     Dosage: 4 MILLIGRAM, 1/WEEK
     Dates: start: 20210118, end: 20210323
  2. BORTEZOMIB [Suspect]
     Active Substance: BORTEZOMIB
     Indication: Plasma cell myeloma refractory
     Dosage: 2 MILLIGRAM, QD
     Dates: start: 20210916
  3. PAMIDRONATE DISODIUM [Concomitant]
     Active Substance: PAMIDRONATE DISODIUM
     Indication: Bone demineralisation
     Dosage: 15 MILLIGRAM, QD
     Dates: start: 20210118, end: 20210121
  4. LOPERAMIDE HYDROCHLORIDE [Concomitant]
     Active Substance: LOPERAMIDE HYDROCHLORIDE
     Indication: Antidiarrhoeal supportive care
     Dosage: 4 MILLIGRAM, QD
     Dates: start: 20210118, end: 20210201
  5. PROBIOTICS NOS [Concomitant]
     Active Substance: PROBIOTICS NOS
     Indication: Dysbiosis
     Dosage: UNK UNK, BID
     Dates: start: 20210118, end: 20210123
  6. MONTMORILLONITE [Concomitant]
     Active Substance: MONTMORILLONITE
     Indication: Antidiarrhoeal supportive care
     Dosage: 9 GRAM, QD
     Dates: start: 20210201, end: 202102
  7. Clostridium butyricum [Concomitant]
     Indication: Dysbiosis
     Dosage: 40 MILLIGRAM, TID
     Dates: start: 20210121, end: 20210201
  8. Clostridium butyricum [Concomitant]
     Indication: Constipation
  9. METOCLOPRAMIDE DIHYDROCHLORIDE [Concomitant]
     Active Substance: METOCLOPRAMIDE DIHYDROCHLORIDE
     Indication: Antiemetic supportive care
     Dosage: 10 MILLIGRAM, QD
     Dates: start: 20210201, end: 20210201
  10. VITAMIN B6 [Concomitant]
     Active Substance: PYRIDOXINE HYDROCHLORIDE
     Indication: Vitamin supplementation
     Dosage: 0.2 GRAM, QD
     Dates: start: 20210201, end: 20210201
  11. POTASSIUM CHLORIDE [Concomitant]
     Active Substance: POTASSIUM CHLORIDE
     Indication: Mineral supplementation
     Dosage: 1 GRAM, QD
     Dates: start: 20210201, end: 20210202
  12. ESOMEPRAZOLE SODIUM [Concomitant]
     Active Substance: ESOMEPRAZOLE SODIUM
     Indication: Prophylaxis
     Dosage: 40 MILLIGRAM, QD
     Dates: start: 20210201, end: 20210201
  13. LOPERAMIDE HYDROCHLORIDE [Concomitant]
     Active Substance: LOPERAMIDE HYDROCHLORIDE
     Indication: Antidiarrhoeal supportive care
     Dosage: 4 MILLIGRAM, QD
     Dates: start: 20210118, end: 20210201
  14. LIDOCAINE HYDROCHLORIDE [Concomitant]
     Active Substance: LIDOCAINE HYDROCHLORIDE
     Indication: Local anaesthesia
     Dosage: 100 MILLIGRAM, BID
     Route: 061
     Dates: start: 20210201, end: 20210201
  15. SODIUM BICARBONATE [Concomitant]
     Active Substance: SODIUM BICARBONATE
     Indication: Urine alkalinisation therapy
     Dosage: 1 GRAM, TID
     Dates: start: 20210121, end: 20210203
  16. DEXAMETHASONE ACETATE [Concomitant]
     Active Substance: DEXAMETHASONE ACETATE
     Indication: Plasma cell myeloma
     Dosage: UNK UNK, QD
     Dates: start: 20210121, end: 20210124
  17. ZOLPIDEM TARTRATE [Concomitant]
     Active Substance: ZOLPIDEM TARTRATE
     Indication: Sleep disorder
     Dates: start: 20210121, end: 20210127

REACTIONS (7)
  - Plasma cell myeloma refractory [Fatal]
  - Respiratory failure [Fatal]
  - Status epilepticus [Recovering/Resolving]
  - Pneumonia [Not Recovered/Not Resolved]
  - Nausea [Recovered/Resolved]
  - Vomiting [Recovered/Resolved]
  - Diarrhoea [Recovered/Resolved]

NARRATIVE: CASE EVENT DATE: 20210219
